FAERS Safety Report 24406828 (Version 1)
Quarter: 2024Q4

REPORT INFORMATION
  Report Type: Spontaneous
  Country: CN (occurrence: CN)
  Receive Date: 20241007
  Receipt Date: 20241007
  Transmission Date: 20250115
  Serious: Yes (Hospitalization, Other)
  Sender: BAXTER
  Company Number: None

PATIENT
  Age: 31 Year
  Sex: Female
  Weight: 53 kg

DRUGS (9)
  1. CYCLOPHOSPHAMIDE [Suspect]
     Active Substance: CYCLOPHOSPHAMIDE
     Indication: Breast cancer female
     Dosage: 850 MG, 1ST CHEMOTHERAPY REGIMEN
     Route: 065
     Dates: start: 20240701
  2. CYCLOPHOSPHAMIDE [Suspect]
     Active Substance: CYCLOPHOSPHAMIDE
     Dosage: 850 MG, 2ND CHEMOTHERAPY REGIMEN
     Route: 065
     Dates: start: 20240722
  3. CYCLOPHOSPHAMIDE [Suspect]
     Active Substance: CYCLOPHOSPHAMIDE
     Dosage: 850 MG, 3RD CHEMOTHERAPY REGIMEN
     Route: 065
     Dates: start: 20240805
  4. CYCLOPHOSPHAMIDE [Suspect]
     Active Substance: CYCLOPHOSPHAMIDE
     Dosage: 0.85 G, ONE TIME IN ONE DAY, FOURTH  CHEMOTHERAPY
     Route: 041
     Dates: start: 20240902, end: 20240902
  5. DOXORUBICIN HYDROCHLORIDE [Suspect]
     Active Substance: DOXORUBICIN HYDROCHLORIDE
     Indication: Breast cancer female
     Dosage: 50 MG, ONE TIME IN ONE DAY, FOURTH CHEMOTHERAPY
     Route: 041
     Dates: start: 20240902, end: 20240902
  6. DOXORUBICIN HYDROCHLORIDE [Suspect]
     Active Substance: DOXORUBICIN HYDROCHLORIDE
     Indication: Breast cancer female
     Dosage: 50 MG, 1ST CHEMOTHERAPY REGIMEN
     Route: 065
     Dates: start: 20240701
  7. DOXORUBICIN HYDROCHLORIDE [Suspect]
     Active Substance: DOXORUBICIN HYDROCHLORIDE
     Dosage: 50 MG, 2ND CHEMOTHERAPY REGIMEN
     Route: 065
     Dates: start: 20240722
  8. DOXORUBICIN HYDROCHLORIDE [Suspect]
     Active Substance: DOXORUBICIN HYDROCHLORIDE
     Dosage: 50 MG, 3RD CHEMOTHERAPY REGIMEN
     Route: 065
     Dates: start: 20240805
  9. DEXAMETHASONE [Suspect]
     Active Substance: DEXAMETHASONE
     Dosage: UNK
     Route: 048

REACTIONS (8)
  - Complex regional pain syndrome [Unknown]
  - Condition aggravated [Unknown]
  - Erythema multiforme [Recovering/Resolving]
  - Drug eruption [Recovering/Resolving]
  - Papule [Unknown]
  - Skin exfoliation [Unknown]
  - Toxic skin eruption [Unknown]
  - Skin lesion [Unknown]

NARRATIVE: CASE EVENT DATE: 20240902
